FAERS Safety Report 8273208-5 (Version None)
Quarter: 2012Q2

REPORT INFORMATION
  Report Type: 
  Country: None (occurrence: None)
  Receive Date: 20120411
  Receipt Date: 20120405
  Transmission Date: 20120825
  Serious: Yes (Other)
  Sender: FDA-Public Use
  Company Number: US-UCBSA-031915

PATIENT
  Age: 24 Month
  Sex: Female
  Weight: 11.34 kg

DRUGS (7)
  1. CALCIUM CARBONATE [Concomitant]
     Indication: SUPPLEMENTATION THERAPY
     Route: 064
     Dates: start: 20080701
  2. GYNAZOLE [Concomitant]
     Indication: FUNGAL INFECTION
     Route: 064
     Dates: start: 20090119, end: 20090119
  3. FISH OIL [Concomitant]
     Route: 064
  4. FOLIC ACID [Concomitant]
     Route: 064
     Dates: start: 20080701
  5. TERAZOL 3 [Concomitant]
     Indication: FUNGAL INFECTION
     Dosage: DAILY
     Route: 064
     Dates: start: 20090306, end: 20090308
  6. MULTI-VITAMINS [Concomitant]
     Indication: PREGNANCY
     Dosage: DOSE FREQ: DAILY
     Route: 064
  7. KEPPRA [Suspect]
     Indication: EPILEPSY
     Route: 064

REACTIONS (2)
  - TORUS FRACTURE [None]
  - FOETAL EXPOSURE DURING PREGNANCY [None]
